FAERS Safety Report 6231217-1 (Version None)
Quarter: 2009Q2

REPORT INFORMATION
  Report Type: 
  Country: None (occurrence: None)
  Receive Date: 20090611
  Receipt Date: 20090602
  Transmission Date: 20091009
  Serious: Yes (Other)
  Sender: FDA-Public Use
  Company Number: 2009JP003433

PATIENT
  Age: 83 Year
  Sex: Female
  Weight: 56.5 kg

DRUGS (10)
  1. VESICARE [Suspect]
     Indication: HYPERTONIC BLADDER
     Dosage: 5 MG, UID/QD, ORAL; 10 MG UID/QD, ORAL
     Route: 048
     Dates: start: 20070308, end: 20080820
  2. VESICARE [Suspect]
     Indication: HYPERTONIC BLADDER
     Dosage: 5 MG, UID/QD, ORAL; 10 MG UID/QD, ORAL
     Route: 048
     Dates: start: 20080821
  3. PEON (ZALTOPROFEN) [Concomitant]
  4. MUCOSTA (REBAMIPIDE) [Concomitant]
  5. ASPARA-CA (ASPARTATE CALCIUM) [Concomitant]
  6. BENET (RISEDRONATE SODIUM) [Concomitant]
  7. DIOVAN [Concomitant]
  8. PROCYLIN (BERAPROST SODIUM) [Concomitant]
  9. DORAL [Concomitant]
  10. FAMOTIDINE [Concomitant]

REACTIONS (4)
  - ANGINA PECTORIS [None]
  - ARTERIAL OCCLUSIVE DISEASE [None]
  - ECG SIGNS OF MYOCARDIAL ISCHAEMIA [None]
  - SUPRAVENTRICULAR EXTRASYSTOLES [None]
